FAERS Safety Report 24557626 (Version 1)
Quarter: 2024Q4

REPORT INFORMATION
  Report Type: Spontaneous
  Country: BR (occurrence: BR)
  Receive Date: 20241028
  Receipt Date: 20241028
  Transmission Date: 20250115
  Serious: Yes (Death)
  Sender: GENMAB
  Company Number: BR-ABBVIE-5979252

PATIENT
  Sex: Male

DRUGS (1)
  1. EPKINLY [Suspect]
     Active Substance: EPCORITAMAB-BYSP
     Indication: Product used for unknown indication
     Dosage: CYCLE C6
     Route: 058

REACTIONS (2)
  - Disease progression [Fatal]
  - Disease complication [Fatal]
